FAERS Safety Report 4695506-4 (Version None)
Quarter: 2005Q2

REPORT INFORMATION
  Report Type: 
  Country: None (occurrence: None)
  Receive Date: 20050620
  Receipt Date: 20050620
  Transmission Date: 20051028
  Serious: Yes (Other)
  Sender: FDA-Public Use
  Company Number: None

PATIENT
  Age: 54 Year
  Sex: Female
  Weight: 93.8946 kg

DRUGS (5)
  1. INTERFERON ALFA [Suspect]
     Indication: HEPATITIS C
  2. XANAX [Concomitant]
  3. LOPRESSOR [Concomitant]
  4. RIBAVIRIN [Concomitant]
  5. MEVACOR [Concomitant]

REACTIONS (2)
  - DEPRESSION [None]
  - OVERDOSE [None]
